FAERS Safety Report 24913583 (Version 1)
Quarter: 2025Q1

REPORT INFORMATION
  Report Type: Spontaneous
  Country: US (occurrence: US)
  Receive Date: 20250201
  Receipt Date: 20250201
  Transmission Date: 20250408
  Serious: No
  Sender: MERCK
  Company Number: US-009507513-2501USA005353

PATIENT
  Sex: Male

DRUGS (1)
  1. WINREVAIR [Suspect]
     Active Substance: SOTATERCEPT-CSRK
     Dates: start: 202406

REACTIONS (3)
  - Rash pruritic [Unknown]
  - Telangiectasia [Unknown]
  - Skin burning sensation [Unknown]

NARRATIVE: CASE EVENT DATE: 20240901
